FAERS Safety Report 20278914 (Version 1)
Quarter: 2022Q1

REPORT INFORMATION
  Report Type: Report from Study
  Country: FR (occurrence: FR)
  Receive Date: 20220103
  Receipt Date: 20220103
  Transmission Date: 20220423
  Serious: Yes (Other)
  Sender: FDA-Public Use
  Company Number: FR-NOVARTISPH-NVSC2021FR286793

PATIENT
  Sex: Female
  Weight: 26 kg

DRUGS (3)
  1. TRAMETINIB [Suspect]
     Active Substance: TRAMETINIB
     Indication: Glioma
     Dosage: 0.5 MG, QD
     Route: 048
     Dates: start: 20210213, end: 20211015
  2. BETAMETHASONE [Concomitant]
     Active Substance: BETAMETHASONE
     Indication: Product used for unknown indication
     Dosage: UNK, (ONE TO TWO TIMES A DAY)
     Route: 061
     Dates: start: 20210213
  3. CICALFATE [Concomitant]
     Indication: Product used for unknown indication
     Dosage: UNK, (ONE TO TWO TIMES A DAY)
     Route: 061
     Dates: start: 20210213

REACTIONS (2)
  - Toxic skin eruption [Not Recovered/Not Resolved]
  - Skin toxicity [Unknown]

NARRATIVE: CASE EVENT DATE: 20210201
